FAERS Safety Report 8709820 (Version 2)
Quarter: 2012Q4

REPORT INFORMATION
  Report Type: 
  Country: US (occurrence: US)
  Receive Date: 20120806
  Receipt Date: 20120905
  Transmission Date: 20130627
  Serious: No
  Sender: FDA-Public Use
  Company Number: US-ELI_LILLY_AND_COMPANY-US201207007755

PATIENT
  Age: 48 Year
  Sex: Female
  Weight: 78.46 kg

DRUGS (8)
  1. CYMBALTA [Suspect]
     Indication: FIBROMYALGIA
     Dosage: 60mg, daily
     Dates: start: 20080202, end: 201204
  2. CYMBALTA [Suspect]
     Dosage: 60mg, daily
     Dates: start: 201205, end: 201206
  3. CYMBALTA [Suspect]
     Dosage: 60mg, daily
     Dates: start: 201206
  4. PERCOCET [Concomitant]
  5. ENABLEX                            /01760401/ [Concomitant]
     Indication: BLADDER DYSFUNCTION
  6. TOPAMAX [Concomitant]
  7. ALBUTEROL [Concomitant]
     Dosage: UNK, prn
  8. FLUTICASONE [Concomitant]

REACTIONS (6)
  - Drug withdrawal syndrome [Recovered/Resolved]
  - Urinary incontinence [Recovered/Resolved]
  - Mood altered [Unknown]
  - Irritability [Unknown]
  - Anger [Unknown]
  - Intentional drug misuse [Unknown]
